FAERS Safety Report 9031520 (Version 1)
Quarter: 2013Q1

REPORT INFORMATION
  Report Type: Report from Study
  Country: LB (occurrence: LB)
  Receive Date: 20130124
  Receipt Date: 20130124
  Transmission Date: 20140127
  Serious: Yes (Death)
  Sender: FDA-Public Use
  Company Number: LB-ROCHE-1182248

PATIENT
  Age: 36 Year
  Sex: Male

DRUGS (9)
  1. BEVACIZUMAB [Suspect]
     Indication: COLORECTAL CANCER METASTATIC
     Route: 042
     Dates: start: 20121114, end: 20121128
  2. CAMPTO [Concomitant]
     Indication: CHEMOTHERAPY
     Route: 042
     Dates: start: 20121114, end: 20121128
  3. KYTRIL [Concomitant]
     Indication: PREMEDICATION
     Route: 042
     Dates: start: 20121114, end: 20121128
  4. PRIMPERAN (METOCLOPRAMIDE) [Concomitant]
     Indication: PREMEDICATION
     Dosage: 1 AMPOULE
     Route: 042
     Dates: start: 20121114, end: 20121128
  5. SOLU-MEDROL [Concomitant]
     Indication: PREMEDICATION
     Route: 042
     Dates: start: 20121114, end: 20121128
  6. ZANTAC [Concomitant]
     Indication: PREMEDICATION
     Dosage: 1 AMPOULE
     Route: 042
     Dates: start: 20121114, end: 20121128
  7. PANADOL [Concomitant]
     Indication: PAIN
     Route: 048
     Dates: start: 20121114, end: 20121128
  8. AERIUS [Concomitant]
     Indication: HYPERSENSITIVITY
     Dosage: 1 CAPSULE
     Route: 048
     Dates: start: 20121114, end: 20121128
  9. ATROPINE [Concomitant]
     Indication: PREMEDICATION
     Route: 058
     Dates: start: 20121114, end: 20121128

REACTIONS (1)
  - Death [Fatal]
